FAERS Safety Report 9900722 (Version 2)
Quarter: 2014Q1

REPORT INFORMATION
  Report Type: Spontaneous
  Country: US (occurrence: US)
  Receive Date: 20140217
  Receipt Date: 20140320
  Transmission Date: 20141002
  Serious: No
  Sender: FDA-Public Use
  Company Number: US-009507513-1402USA007632

PATIENT
  Age: 39 Year
  Sex: Female
  Weight: 68.93 kg

DRUGS (2)
  1. DULERA [Suspect]
     Indication: ASTHMA
     Dosage: 2 PUFFS BID
     Route: 055
  2. SYMBICORT [Suspect]

REACTIONS (1)
  - Candida infection [Recovered/Resolved]
